FAERS Safety Report 6758770-3 (Version None)
Quarter: 2010Q2

REPORT INFORMATION
  Report Type: 
  Country: None (occurrence: None)
  Receive Date: 20100602
  Receipt Date: 20100526
  Transmission Date: 20101027
  Serious: Yes (Other)
  Sender: FDA-Public Use
  Company Number: 009890

PATIENT
  Age: 69 Year
  Sex: Female

DRUGS (1)
  1. CILOSTAZOL [Suspect]
     Dosage: 100 MG, BID, ORAL
     Route: 048

REACTIONS (2)
  - BLINDNESS [None]
  - EYE PAIN [None]
